FAERS Safety Report 19802036 (Version 1)
Quarter: 2021Q3

REPORT INFORMATION
  Report Type: Spontaneous
  Country: US (occurrence: US)
  Receive Date: 20210903
  Receipt Date: 20210903
  Transmission Date: 20211014
  Serious: Yes (Hospitalization)
  Sender: FDA-Public Use
  Company Number: None

PATIENT
  Sex: Male

DRUGS (2)
  1. CYCLOPHOSPHAMIDE 50MG ROXANE [Suspect]
     Active Substance: CYCLOPHOSPHAMIDE
     Indication: ARTERITIS
     Route: 048
     Dates: start: 20210505
  2. CYCLOPHOSPHAMIDE 50MG ROXANE [Suspect]
     Active Substance: CYCLOPHOSPHAMIDE
     Indication: GLOMERULONEPHRITIS MEMBRANOUS
     Route: 048
     Dates: start: 20210505

REACTIONS (3)
  - Pleural effusion [None]
  - Dyspnoea [None]
  - Renal disorder [None]
